FAERS Safety Report 16030157 (Version 1)
Quarter: 2019Q1

REPORT INFORMATION
  Report Type: Spontaneous
  Country: DE (occurrence: DE)
  Receive Date: 20190304
  Receipt Date: 20190304
  Transmission Date: 20190418
  Serious: Yes (Other)
  Sender: FDA-Public Use
  Company Number: DE-MYLANLABS-2017M1004185

PATIENT

DRUGS (2)
  1. CLOZAPINE. [Suspect]
     Active Substance: CLOZAPINE
     Indication: SCHIZOPHRENIA
     Dosage: UNK
  2. CLOZAPINE. [Suspect]
     Active Substance: CLOZAPINE
     Dosage: UNK

REACTIONS (9)
  - Toxicity to various agents [Recovered/Resolved]
  - Sedation [Recovered/Resolved]
  - Psychomotor retardation [Recovered/Resolved]
  - Disturbance in attention [Recovered/Resolved]
  - Hyperglycaemia [Recovered/Resolved]
  - Mental impairment [Recovered/Resolved]
  - Inflammation [Recovered/Resolved]
  - Antipsychotic drug level increased [Unknown]
  - Enzyme inhibition [Recovered/Resolved]
